FAERS Safety Report 4641398-9 (Version None)
Quarter: 2005Q2

REPORT INFORMATION
  Report Type: 
  Country: None (occurrence: None)
  Receive Date: 20050421
  Receipt Date: 20050330
  Transmission Date: 20051028
  Serious: Yes (Life-Threatening)
  Sender: FDA-Public Use
  Company Number: FR-BRISTOL-MYERS SQUIBB COMPANY-12941423

PATIENT
  Sex: Male

DRUGS (2)
  1. REYATAZ [Suspect]
     Indication: HIV INFECTION
     Route: 048
     Dates: start: 20050201
  2. RITONAVIR [Suspect]
     Indication: HIV INFECTION
     Dates: start: 20050201

REACTIONS (2)
  - ASCITES [None]
  - HEPATIC FAILURE [None]
